FAERS Safety Report 8638735 (Version 4)
Quarter: 2013Q2

REPORT INFORMATION
  Report Type: Report from Study
  Country: GB (occurrence: GB)
  Receive Date: 20120627
  Receipt Date: 20130607
  Transmission Date: 20140414
  Serious: Yes (Hospitalization)
  Sender: FDA-Public Use
  Company Number: GB-ABBOTT-12P-167-0934551-00

PATIENT
  Age: 57 Year
  Sex: Female

DRUGS (19)
  1. HUMIRA [Suspect]
     Indication: RHEUMATOID ARTHRITIS
     Route: 058
     Dates: start: 20120214, end: 20120419
  2. CLARITHROMYCIN [Concomitant]
     Indication: ABDOMINAL PAIN
     Dates: start: 20120508
  3. CLARITHROMYCIN [Concomitant]
     Indication: DIVERTICULUM
  4. ASPIRIN [Concomitant]
     Indication: ANGINA PECTORIS
     Dates: start: 1998
  5. BENDROFLUMETHIAZIDE [Concomitant]
     Indication: HYPERTENSION
     Dates: start: 1980
  6. BENDROFLUMETHIAZIDE [Concomitant]
     Indication: OEDEMA
  7. COLPERMIN [Concomitant]
     Indication: ABDOMINAL PAIN
     Dates: start: 2010
  8. GLYCERYL TRINITRATE [Concomitant]
     Indication: ANGINA PECTORIS
     Dates: start: 1998
  9. BUDESONIDE [Concomitant]
     Indication: ASTHMA
  10. ISOSORBID MONONITRATE [Concomitant]
     Indication: MYOCARDIAL ISCHAEMIA
     Dates: start: 1998
  11. KETOCONAZOLE [Concomitant]
     Indication: ECZEMA
     Dosage: SHAMPOO
     Route: 050
     Dates: start: 2000
  12. LEVOTHYROXINE SODIUM [Concomitant]
     Indication: HYPOTHYROIDISM
     Dates: start: 2003
  13. LORATADINE [Concomitant]
     Indication: ECZEMA
     Dates: start: 2000
  14. METFORMIN [Concomitant]
     Indication: DIABETES MELLITUS
     Dates: start: 2006
  15. OILATUM EMOLLIENT [Concomitant]
     Indication: ECZEMA
     Dates: start: 2000
  16. PREGABALIN [Concomitant]
     Indication: NERVOUS SYSTEM DISORDER
     Dates: start: 2010
  17. RABEPRAZOLE [Concomitant]
     Indication: GASTRIC ULCER
     Dates: start: 1980
  18. RAMIPRIL [Concomitant]
     Indication: HYPERTENSION
     Dates: start: 20120101
  19. ROSUVASTATIN [Concomitant]
     Indication: BLOOD CHOLESTEROL INCREASED
     Dates: start: 2000

REACTIONS (1)
  - Diverticulum [Not Recovered/Not Resolved]
